FAERS Safety Report 6782836-5 (Version None)
Quarter: 2010Q2

REPORT INFORMATION
  Report Type: 
  Country: None (occurrence: None)
  Receive Date: 20100617
  Receipt Date: 20100601
  Transmission Date: 20101027
  Serious: Yes (Hospitalization)
  Sender: FDA-Public Use
  Company Number: 2010002144

PATIENT
  Sex: Female

DRUGS (12)
  1. TARCEVA [Suspect]
     Dosage: (100 MG, QD), ORAL; (150 MG, QD), ORAL
     Route: 048
  2. SERTRALINE [Concomitant]
  3. LORAZEPAM [Concomitant]
  4. VALIUM [Concomitant]
  5. ZOFRAN [Concomitant]
  6. LEVOTHYROXINE SODIUM [Concomitant]
  7. OXYCODONE HCL [Concomitant]
  8. OXYCONTIN [Concomitant]
  9. COLACE (DOCUSATE SODIUM) [Concomitant]
  10. RANITIDINE [Concomitant]
  11. PROCHLOPER (PROCHLORPERAZINE) [Concomitant]
  12. PREVACID [Concomitant]

REACTIONS (2)
  - DEEP VEIN THROMBOSIS [None]
  - PULMONARY EMBOLISM [None]
